FAERS Safety Report 11100612 (Version 3)
Quarter: 2015Q4

REPORT INFORMATION
  Report Type: Report from Study
  Country: US (occurrence: US)
  Receive Date: 20150508
  Receipt Date: 20151001
  Transmission Date: 20160304
  Serious: Yes (Hospitalization, Other)
  Sender: FDA-Public Use
  Company Number: US-ASTELLAS-2015US015708

PATIENT
  Age: 71 Year
  Sex: Female

DRUGS (13)
  1. ERLOTINIB [Suspect]
     Active Substance: ERLOTINIB
     Route: 048
     Dates: start: 201410
  2. MELATONIN [Concomitant]
     Active Substance: MELATONIN
     Indication: PRODUCT USED FOR UNKNOWN INDICATION
     Dosage: UNK UNK, UNKNOWN FREQ.
     Route: 065
  3. ERLOTINIB [Suspect]
     Active Substance: ERLOTINIB
     Dosage: 150 MG, TWICE WEEKLY (MONDAYS AND FRIDAYS)
     Route: 048
     Dates: start: 201410
  4. ERLOTINIB [Suspect]
     Active Substance: ERLOTINIB
     Dosage: UNK, TWICE WEEKLY
  5. ERLOTINIB [Suspect]
     Active Substance: ERLOTINIB
     Route: 048
     Dates: end: 2015
  6. ERLOTINIB [Suspect]
     Active Substance: ERLOTINIB
     Indication: SMALL CELL LUNG CANCER
     Dosage: 150 MG, THRICE WEEKLY (MONDAYS, WEDNSDAYS AND FRIDAYS)
     Route: 048
  7. ERLOTINIB [Suspect]
     Active Substance: ERLOTINIB
     Route: 048
     Dates: start: 201410
  8. ERLOTINIB [Suspect]
     Active Substance: ERLOTINIB
     Dosage: UNK, EVERY 2 WEEKS
     Route: 048
  9. MULTAQ [Concomitant]
     Active Substance: DRONEDARONE
     Indication: ARRHYTHMIA
     Dosage: UNK UNK, UNKNOWN FREQ.
     Route: 065
  10. UNSPECIFIED THYROID PILL [Concomitant]
     Indication: PRODUCT USED FOR UNKNOWN INDICATION
     Dosage: UNK UNK, UNKNOWN FREQ.
     Route: 065
  11. SPIRONOLACTONE. [Concomitant]
     Active Substance: SPIRONOLACTONE
     Indication: DIURETIC THERAPY
     Dosage: UNK UNK, UNKNOWN FREQ.
     Route: 065
  12. VITAMINS NOS [Concomitant]
     Active Substance: VITAMINS
     Indication: PRODUCT USED FOR UNKNOWN INDICATION
     Dosage: UNK UNK, UNKNOWN FREQ.
     Route: 065
  13. CHEMOTHERAPY [Concomitant]
     Active Substance: UNSPECIFIED INGREDIENT
     Indication: PRODUCT USED FOR UNKNOWN INDICATION
     Dosage: UNK UNK, UNKNOWN FREQ.
     Route: 065

REACTIONS (21)
  - Brain injury [Unknown]
  - Functional gastrointestinal disorder [Unknown]
  - Fatigue [Not Recovered/Not Resolved]
  - Blindness [Unknown]
  - Dyspnoea [Unknown]
  - Pulmonary hypertension [Recovered/Resolved]
  - Immunodeficiency [Unknown]
  - Disturbance in attention [Unknown]
  - Pallor [Unknown]
  - Chest pain [Recovered/Resolved]
  - Vision blurred [Recovered/Resolved]
  - Amnesia [Unknown]
  - Oedema [Unknown]
  - Tremor [Not Recovered/Not Resolved]
  - Swelling [Unknown]
  - Asthenia [Unknown]
  - Poisoning [Unknown]
  - Mental disorder [Unknown]
  - Atrial flutter [Unknown]
  - Rash [Unknown]
  - Pulmonary thrombosis [Unknown]

NARRATIVE: CASE EVENT DATE: 201402
